FAERS Safety Report 21102858 (Version 1)
Quarter: 2022Q3

REPORT INFORMATION
  Report Type: Spontaneous
  Country: FR (occurrence: FR)
  Receive Date: 20220720
  Receipt Date: 20220720
  Transmission Date: 20221026
  Serious: Yes (Life-Threatening, Hospitalization, Other)
  Sender: FDA-Public Use
  Company Number: FR-AFSSAPS-MA20222882

PATIENT
  Age: 30 Year
  Sex: Female
  Weight: 80 kg

DRUGS (3)
  1. CARBOPLATIN [Suspect]
     Active Substance: CARBOPLATIN
     Indication: Triple negative breast cancer
     Dosage: UNK (AUC5)
     Route: 042
     Dates: start: 20220520, end: 20220610
  2. KEYTRUDA [Suspect]
     Active Substance: PEMBROLIZUMAB
     Indication: Triple negative breast cancer
     Dosage: 200 MILLIGRAM (200MG EVERY 21 DAYS)
     Route: 042
     Dates: start: 20220520, end: 20220610
  3. PACLITAXEL [Suspect]
     Active Substance: PACLITAXEL
     Indication: Triple negative breast cancer
     Dosage: 80 MILLIGRAM (80MG/M2 J1, J8, J15)
     Route: 042
     Dates: start: 20220520, end: 20220601

REACTIONS (2)
  - Enterocolitis haemorrhagic [Unknown]
  - Neutropenia [Unknown]

NARRATIVE: CASE EVENT DATE: 20220623
